FAERS Safety Report 4551686-2 (Version None)
Quarter: 2005Q1

REPORT INFORMATION
  Report Type: 
  Country: None (occurrence: None)
  Receive Date: 20050112
  Receipt Date: 20041230
  Transmission Date: 20050727
  Serious: Yes (Life-Threatening, Hospitalization)
  Sender: FDA-Public Use
  Company Number: MEDI-0002613

PATIENT
  Age: 55 Year
  Sex: Male
  Weight: 85.2762 kg

DRUGS (4)
  1. ETHYOL [Suspect]
     Indication: CHEMOTHERAPY
     Dosage: 500 MG, DURING RADIATION THERAPY, SUBCUTANEOUS
     Route: 058
     Dates: start: 20041124, end: 20041207
  2. ETHYOL [Suspect]
     Indication: RADIOTHERAPY
     Dosage: 500 MG, DURING RADIATION THERAPY, SUBCUTANEOUS
     Route: 058
     Dates: start: 20041124, end: 20041207
  3. RADIATION THERAPY [Concomitant]
  4. CISPLATIN [Concomitant]

REACTIONS (10)
  - ANXIETY [None]
  - DEHYDRATION [None]
  - DIZZINESS [None]
  - HYPOTENSION [None]
  - HYPOVOLAEMIC SHOCK [None]
  - MUCOSAL INFLAMMATION [None]
  - NAUSEA [None]
  - PANCYTOPENIA [None]
  - RENAL FAILURE [None]
  - VOMITING [None]
